FAERS Safety Report 8267312-5 (Version None)
Quarter: 2012Q2

REPORT INFORMATION
  Report Type: 
  Country: None (occurrence: None)
  Receive Date: 20120405
  Receipt Date: 20120405
  Transmission Date: 20120825
  Serious: Yes (Other)
  Sender: FDA-Public Use
  Company Number: None

PATIENT

DRUGS (1)
  1. SENSIPAR [Suspect]
     Dosage: SENSIPAR 30 MG ONCE DAILY PO
     Route: 048
     Dates: start: 20120316, end: 20120320

REACTIONS (3)
  - NAUSEA [None]
  - VOMITING [None]
  - HAEMATURIA [None]
